FAERS Safety Report 7787018-6 (Version None)
Quarter: 2011Q3

REPORT INFORMATION
  Report Type: 
  Country: None (occurrence: None)
  Receive Date: 20110927
  Receipt Date: 20110915
  Transmission Date: 20111222
  Serious: Yes (Other)
  Sender: FDA-Public Use
  Company Number: 1049676

PATIENT
  Age: 42 Year
  Sex: Female

DRUGS (2)
  1. (THERAPEUTIC RADIOPHARMACEUTICALS) [Concomitant]
  2. GEMCITABINE HYDROCHLORIDE [Suspect]
     Indication: PANCREATIC CARCINOMA
     Dosage: 1 G GRAM(S), 1 DAY, INTRAVENOUS (NOT OTHERWISE SPECIFIED)
     Route: 042
     Dates: start: 20101209, end: 20110316

REACTIONS (2)
  - HYPOALBUMINAEMIA [None]
  - HYPONATRAEMIA [None]
